FAERS Safety Report 5221598-X (Version None)
Quarter: 2007Q1

REPORT INFORMATION
  Report Type: 
  Country: None (occurrence: None)
  Receive Date: 20070129
  Receipt Date: 20070117
  Transmission Date: 20070707
  Serious: Yes (Hospitalization)
  Sender: FDA-Public Use
  Company Number: US-ELI_LILLY_AND_COMPANY-US200609003459

PATIENT
  Age: 49 Year
  Sex: Male
  Weight: 64.852 kg

DRUGS (1)
  1. ZYPREXA [Suspect]
     Dosage: 2.5 MG, UNK
     Dates: start: 20000101, end: 20030101

REACTIONS (11)
  - ANGER [None]
  - ANXIETY [None]
  - ASTHENIA [None]
  - BLOOD CHOLESTEROL INCREASED [None]
  - CHEST PAIN [None]
  - DEPRESSION [None]
  - DIABETES MELLITUS [None]
  - EMOTIONAL DISORDER [None]
  - HYPERTENSION [None]
  - MOOD SWINGS [None]
  - NERVOUSNESS [None]
